FAERS Safety Report 4649225-0 (Version None)
Quarter: 2005Q2

REPORT INFORMATION
  Report Type: 
  Country: None (occurrence: None)
  Receive Date: 20050429
  Receipt Date: 20050420
  Transmission Date: 20051028
  Serious: Yes (Other)
  Sender: FDA-Public Use
  Company Number: JP-BRISTOL-MYERS SQUIBB COMPANY-12947396

PATIENT
  Age: 67 Year
  Sex: Female

DRUGS (2)
  1. GATIFLO TABS 100 MG [Suspect]
     Indication: PYELONEPHRITIS
     Route: 048
     Dates: start: 20050413, end: 20050417
  2. GASLON N [Concomitant]
     Indication: PYELONEPHRITIS
     Route: 048
     Dates: start: 20050413, end: 20050417

REACTIONS (2)
  - FAECAL INCONTINENCE [None]
  - LOSS OF CONSCIOUSNESS [None]
